FAERS Safety Report 6468125-7 (Version None)
Quarter: 2009Q4

REPORT INFORMATION
  Report Type: 
  Country: None (occurrence: None)
  Receive Date: 20091202
  Receipt Date: 20091130
  Transmission Date: 20100525
  Serious: Yes (Hospitalization)
  Sender: FDA-Public Use
  Company Number: ES-MERCK-0912ESP00001

PATIENT
  Age: 77 Year
  Sex: Female

DRUGS (1)
  1. INVANZ [Suspect]
     Indication: ESCHERICHIA INFECTION
     Route: 042
     Dates: start: 20090409, end: 20090414

REACTIONS (1)
  - PARTIAL SEIZURES [None]
